FAERS Safety Report 5101231-8 (Version None)
Quarter: 2006Q3

REPORT INFORMATION
  Report Type: 
  Country: None (occurrence: None)
  Receive Date: 20060906
  Receipt Date: 20060821
  Transmission Date: 20061208
  Serious: Yes (Hospitalization)
  Sender: FDA-Public Use
  Company Number: 2006BI011569

PATIENT
  Age: 51 Year
  Sex: Female

DRUGS (5)
  1. AVONEX [Suspect]
     Indication: MULTIPLE SCLEROSIS
     Dosage: 30 UG; QW; IM
     Route: 030
     Dates: start: 20060701
  2. SIMVAHEXAL [Concomitant]
  3. ZOLOFT [Concomitant]
  4. PARACETAMOL [Concomitant]
  5. IMBUN [Concomitant]

REACTIONS (11)
  - CONDITION AGGRAVATED [None]
  - CYTOMEGALOVIRUS ANTIBODY POSITIVE [None]
  - EPSTEIN-BARR VIRUS ANTIBODY POSITIVE [None]
  - HEPATIC ENCEPHALOPATHY [None]
  - HEPATIC FAILURE [None]
  - HEPATIC NECROSIS [None]
  - INFLUENZA LIKE ILLNESS [None]
  - LIVER TRANSPLANT [None]
  - MULTIPLE SCLEROSIS [None]
  - SOMNOLENCE [None]
  - VARICELLA ZOSTER VIRUS SEROLOGY POSITIVE [None]
